FAERS Safety Report 24247651 (Version 2)
Quarter: 2024Q3

REPORT INFORMATION
  Report Type: Report from Study
  Country: CH (occurrence: CH)
  Receive Date: 20240826
  Receipt Date: 20240829
  Transmission Date: 20241017
  Serious: Yes (Death)
  Sender: RANBAXY
  Company Number: CH-SUN PHARMACEUTICAL INDUSTRIES LTD-2024RR-464541

PATIENT
  Age: 98 Year
  Sex: Female

DRUGS (8)
  1. SONIDEGIB [Suspect]
     Active Substance: SONIDEGIB
     Indication: Product used for unknown indication
     Dosage: 200 MILLIGRAM, DAILY
     Route: 048
     Dates: start: 20210801
  2. XARELTO [Concomitant]
     Active Substance: RIVAROXABAN
     Indication: Pre-existing disease
     Dosage: 20 MILLIGRAM, DAILY
     Route: 048
  3. SODIUM CHONDROITIN SULFATE [Concomitant]
     Active Substance: SODIUM CHONDROITIN SULFATE
     Indication: Pre-existing disease
     Dosage: DAILY
     Route: 048
  4. Symfona [Concomitant]
     Indication: Pre-existing disease
     Dosage: UNK
     Route: 065
  5. LISINOPRIL [Concomitant]
     Active Substance: LISINOPRIL
     Indication: Pre-existing disease
     Dosage: UNK
     Route: 048
  6. CITALOPRAM [Concomitant]
     Active Substance: CITALOPRAM\CITALOPRAM HYDROBROMIDE
     Indication: Pre-existing disease
     Dosage: UNK
     Route: 065
  7. ViDe Tropfen [Concomitant]
     Indication: Prophylaxis
     Dosage: 3 DROPS, DAILY
     Route: 048
  8. PROLIA [Concomitant]
     Active Substance: DENOSUMAB
     Indication: Prophylaxis
     Dosage: UNK, DAILY
     Route: 048

REACTIONS (1)
  - Death [Fatal]

NARRATIVE: CASE EVENT DATE: 20230927
